FAERS Safety Report 12556872 (Version 1)
Quarter: 2016Q3

REPORT INFORMATION
  Report Type: Report from Study
  Country: PE (occurrence: PE)
  Receive Date: 20160714
  Receipt Date: 20160714
  Transmission Date: 20161109
  Serious: Yes (Hospitalization, Other)
  Sender: FDA-Public Use
  Company Number: PE-AMGEN-PERSP2016090593

PATIENT
  Age: 92 Year
  Sex: Male

DRUGS (6)
  1. PROLIA [Suspect]
     Active Substance: DENOSUMAB
     Dosage: 60 MG/ML, CYC
     Route: 058
     Dates: start: 20131006
  2. PROLIA [Suspect]
     Active Substance: DENOSUMAB
     Dosage: 60 MG/ML, CYC
     Route: 058
     Dates: start: 20140528
  3. PROLIA [Suspect]
     Active Substance: DENOSUMAB
     Indication: OSTEOPOROSIS
     Dosage: 60 MG/ML, CYC
     Route: 058
     Dates: start: 20121210
  4. PROLIA [Suspect]
     Active Substance: DENOSUMAB
     Dosage: 60 MG/ML, CYC
     Route: 058
     Dates: start: 20160127
  5. PROLIA [Suspect]
     Active Substance: DENOSUMAB
     Dosage: 60 MG/ML, CYC
     Route: 058
     Dates: start: 20150806
  6. PROLIA [Suspect]
     Active Substance: DENOSUMAB
     Dosage: 60 MG/ML, CYC
     Route: 058
     Dates: start: 20131213

REACTIONS (4)
  - Myalgia [Not Recovered/Not Resolved]
  - Gait disturbance [Unknown]
  - Myocardial infarction [Recovering/Resolving]
  - Fall [Unknown]

NARRATIVE: CASE EVENT DATE: 20160616
